FAERS Safety Report 25976135 (Version 1)
Quarter: 2025Q4

REPORT INFORMATION
  Report Type: Spontaneous
  Country: CN (occurrence: CN)
  Receive Date: 20251029
  Receipt Date: 20251029
  Transmission Date: 20260117
  Serious: Yes (Hospitalization, Other)
  Sender: BEIGENE
  Company Number: CN-BEIGENE-BGN-2025-018367

PATIENT
  Age: 71 Year
  Weight: 73 kg

DRUGS (8)
  1. TISLELIZUMAB [Suspect]
     Active Substance: TISLELIZUMAB
     Indication: Oesophageal squamous cell carcinoma
     Dosage: 200 MILLIGRAM
  2. TISLELIZUMAB [Suspect]
     Active Substance: TISLELIZUMAB
     Dosage: 200 MILLIGRAM
     Route: 041
  3. TISLELIZUMAB [Suspect]
     Active Substance: TISLELIZUMAB
     Dosage: 200 MILLIGRAM
     Route: 041
  4. TISLELIZUMAB [Suspect]
     Active Substance: TISLELIZUMAB
     Dosage: 200 MILLIGRAM
  5. NEDAPLATIN [Concomitant]
     Active Substance: NEDAPLATIN
     Indication: Oesophageal squamous cell carcinoma
     Dosage: 80 MILLIGRAM
     Route: 041
  6. NEDAPLATIN [Concomitant]
     Active Substance: NEDAPLATIN
     Dosage: 80 MILLIGRAM
  7. PACLITAXEL [Concomitant]
     Active Substance: PACLITAXEL
     Indication: Oesophageal squamous cell carcinoma
     Dosage: 200 MILLIGRAM, 2 TIMES EVERY 8 DAYS
     Route: 041
  8. PACLITAXEL [Concomitant]
     Active Substance: PACLITAXEL
     Dosage: 200 MILLIGRAM, 2 TIMES EVERY 8 DAYS

REACTIONS (7)
  - Hyperthyroidism [Unknown]
  - Oedema peripheral [Recovering/Resolving]
  - Onychoclasis [Unknown]
  - Blister [Unknown]
  - Pruritus [Unknown]
  - Hypothyroidism [Recovering/Resolving]
  - Rash [Recovering/Resolving]
